FAERS Safety Report 7372042-8 (Version None)
Quarter: 2011Q1

REPORT INFORMATION
  Report Type: 
  Country: None (occurrence: None)
  Receive Date: 20110324
  Receipt Date: 20110311
  Transmission Date: 20110831
  Serious: Yes (Other)
  Sender: FDA-Public Use
  Company Number: PHHY2011US20117

PATIENT
  Age: 64 Year
  Sex: Female

DRUGS (2)
  1. RECLAST [Suspect]
     Dosage: UNK
     Dates: start: 20110113
  2. ANTIINFLAMMATORY [Concomitant]

REACTIONS (5)
  - NECK PAIN [None]
  - MYOCARDIAL INFARCTION [None]
  - MYALGIA [None]
  - ARTERIAL OCCLUSIVE DISEASE [None]
  - MUSCULOSKELETAL PAIN [None]
